FAERS Safety Report 5097285-8 (Version None)
Quarter: 2006Q3

REPORT INFORMATION
  Report Type: 
  Country: None (occurrence: None)
  Receive Date: 20060906
  Receipt Date: 20060824
  Transmission Date: 20061208
  Serious: Yes (Hospitalization)
  Sender: FDA-Public Use
  Company Number: PHEH2006US10908

PATIENT
  Age: 38 Year
  Sex: Female
  Weight: 63.492 kg

DRUGS (2)
  1. TRILEPTAL [Suspect]
     Indication: CONVULSION
     Dosage: 300 MG, BID
     Route: 048
     Dates: start: 20060221
  2. NUTRITION SUPPLEMENTS (BELLA NATRI) [Suspect]
     Indication: MEDICAL DIET
     Dosage: UNK, ONCE/SINGLE
     Route: 048
     Dates: start: 20060701, end: 20060817

REACTIONS (3)
  - DRUG INTERACTION [None]
  - ELECTROENCEPHALOGRAM ABNORMAL [None]
  - GRAND MAL CONVULSION [None]
